FAERS Safety Report 5993644-7 (Version None)
Quarter: 2008Q4

REPORT INFORMATION
  Report Type: 
  Country: None (occurrence: None)
  Receive Date: 20081212
  Receipt Date: 20081209
  Transmission Date: 20090506
  Serious: Yes (Life-Threatening)
  Sender: FDA-Public Use
  Company Number: PHHY2008ES31168

PATIENT

DRUGS (2)
  1. SANDIMMUNE [Suspect]
     Indication: PSORIASIS
     Dosage: 200 MG DAILY
     Route: 048
  2. DURAGESIC-100 [Suspect]
     Indication: PAIN
     Dosage: UNK
     Route: 062
     Dates: start: 20080501, end: 20080726

REACTIONS (6)
  - BLOOD CREATININE INCREASED [None]
  - DIZZINESS [None]
  - HEADACHE [None]
  - RENAL IMPAIRMENT [None]
  - THERAPEUTIC AGENT TOXICITY [None]
  - VOMITING [None]
